FAERS Safety Report 4579594-1 (Version None)
Quarter: 2005Q1

REPORT INFORMATION
  Report Type: 
  Country: None (occurrence: None)
  Receive Date: 20050209
  Receipt Date: 20050209
  Transmission Date: 20050727
  Serious: No
  Sender: FDA-Public Use
  Company Number: None

PATIENT
  Age: 40 Year
  Sex: Male

DRUGS (4)
  1. DEPAKENE [Suspect]
     Indication: CONVULSION
     Dosage: 750MG TID
     Dates: start: 20031024
  2. DILANTIN [Concomitant]
  3. SYNTHROID [Concomitant]
  4. PREVACID [Concomitant]

REACTIONS (1)
  - CONVULSION [None]
